FAERS Safety Report 9620619 (Version 2)
Quarter: 2013Q4

REPORT INFORMATION
  Report Type: Spontaneous
  Country: US (occurrence: US)
  Receive Date: 20131015
  Receipt Date: 20131015
  Transmission Date: 20140711
  Serious: Yes (Other)
  Sender: FDA-Public Use
  Company Number: US-AMGEN-USASP2013064770

PATIENT
  Age: 68 Year
  Sex: Male
  Weight: 80.82 kg

DRUGS (2)
  1. NPLATE [Suspect]
     Indication: IMMUNE THROMBOCYTOPENIC PURPURA
     Dosage: 1 MUG/KG, UNK
     Route: 065
     Dates: start: 20130620
  2. ADDERALL [Concomitant]
     Dosage: 20 MG, QD
     Route: 048
     Dates: start: 20130610

REACTIONS (3)
  - Platelet count decreased [Recovered/Resolved]
  - Therapeutic response decreased [Recovered/Resolved]
  - Therapy change [Unknown]
